FAERS Safety Report 24316186 (Version 1)
Quarter: 2024Q3

REPORT INFORMATION
  Report Type: Spontaneous
  Country: US (occurrence: None)
  Receive Date: 20240912
  Receipt Date: 20240912
  Transmission Date: 20241017
  Serious: Yes (Other)
  Sender: Public
  Company Number: None

PATIENT
  Age: 77 Year
  Sex: Male

DRUGS (1)
  1. CAPECITABINE [Suspect]
     Active Substance: CAPECITABINE
     Indication: Malignant neoplasm of thymus
     Dosage: OTHER FREQUENCY : 1500 QAM, 2000 QPM;?
     Route: 048
     Dates: start: 20240530

REACTIONS (4)
  - Dizziness [None]
  - Palmar-plantar erythrodysaesthesia syndrome [None]
  - Dyspnoea [None]
  - Abdominal discomfort [None]

NARRATIVE: CASE EVENT DATE: 20240604
